FAERS Safety Report 6504458-3 (Version None)
Quarter: 2009Q4

REPORT INFORMATION
  Report Type: 
  Country: None (occurrence: None)
  Receive Date: 20091215
  Receipt Date: 20091207
  Transmission Date: 20100525
  Serious: Yes (Hospitalization)
  Sender: FDA-Public Use
  Company Number: 2009029520

PATIENT

DRUGS (2)
  1. TRISENOX [Suspect]
     Indication: MYELODYSPLASTIC SYNDROME
     Dosage: (CYCLICAL), INTRAVENOUS DRIP
     Route: 041
     Dates: end: 20040930
  2. LOVASTATIN [Suspect]
     Indication: MYELODYSPLASTIC SYNDROME
     Dates: end: 20041003

REACTIONS (17)
  - ABDOMINAL DISTENSION [None]
  - ACUTE MYELOID LEUKAEMIA [None]
  - CHEST PAIN [None]
  - COUGH [None]
  - DIZZINESS [None]
  - DYSPEPSIA [None]
  - ERYTHEMA [None]
  - FATIGUE [None]
  - FLATULENCE [None]
  - HAEMOPTYSIS [None]
  - HEADACHE [None]
  - HYPERHIDROSIS [None]
  - HYPERKALAEMIA [None]
  - PARAESTHESIA [None]
  - PNEUMONIA [None]
  - RASH [None]
  - UNEVALUABLE EVENT [None]
